FAERS Safety Report 20109764 (Version 1)
Quarter: 2021Q4

REPORT INFORMATION
  Report Type: Spontaneous
  Country: US (occurrence: US)
  Receive Date: 20211124
  Receipt Date: 20211124
  Transmission Date: 20220303
  Serious: Yes (Other)
  Sender: FDA-Public Use
  Company Number: US-GLAXOSMITHKLINE-US2021GSK242696

PATIENT
  Sex: Male

DRUGS (6)
  1. ZANTAC [Suspect]
     Active Substance: RANITIDINE HYDROCHLORIDE
     Indication: Dyspepsia
     Dosage: 300 MG PRESCRIPTION
     Route: 065
     Dates: start: 201001, end: 201307
  2. ZANTAC [Suspect]
     Active Substance: RANITIDINE HYDROCHLORIDE
     Dosage: 150  MG PRESCRIPTION
     Route: 065
     Dates: start: 201001, end: 201307
  3. ZANTAC [Suspect]
     Active Substance: RANITIDINE HYDROCHLORIDE
     Dosage: 25 UNK, QD
     Route: 065
     Dates: start: 201001, end: 201307
  4. ZANTAC [Suspect]
     Active Substance: RANITIDINE HYDROCHLORIDE
     Indication: Dyspepsia
     Dosage: 300 MG PRESCRIPTION
     Route: 065
     Dates: start: 201001, end: 201307
  5. ZANTAC [Suspect]
     Active Substance: RANITIDINE HYDROCHLORIDE
     Dosage: 150  MG PRESCRIPTION
     Route: 065
     Dates: start: 201001, end: 201307
  6. ZANTAC [Suspect]
     Active Substance: RANITIDINE HYDROCHLORIDE
     Dosage: 25 UNK, QD
     Route: 065
     Dates: start: 201001, end: 201307

REACTIONS (1)
  - Prostate cancer [Unknown]
